FAERS Safety Report 20859921 (Version 1)
Quarter: 2022Q2

REPORT INFORMATION
  Report Type: Report from Study
  Country: AU (occurrence: AU)
  Receive Date: 20220523
  Receipt Date: 20220523
  Transmission Date: 20220721
  Serious: Yes (Death, Other)
  Sender: FDA-Public Use
  Company Number: AU-BAYER-2022A070121

PATIENT
  Sex: Female

DRUGS (1)
  1. EYLEA [Suspect]
     Active Substance: AFLIBERCEPT
     Indication: Neovascular age-related macular degeneration
     Dosage: INTRAVITREAL INJECTION TO LEFT EYE (FORM: SOLUTION FOR INJECTION)
     Dates: start: 20201001

REACTIONS (1)
  - Death [Fatal]

NARRATIVE: CASE EVENT DATE: 20220514
